FAERS Safety Report 9657797 (Version 1)
Quarter: 2013Q4

REPORT INFORMATION
  Report Type: Spontaneous
  Country: FR (occurrence: FR)
  Receive Date: 20131030
  Receipt Date: 20131030
  Transmission Date: 20140711
  Serious: Yes (Hospitalization)
  Sender: FDA-Public Use
  Company Number: FR-UCBSA-101624

PATIENT
  Age: 91 Year
  Sex: Female

DRUGS (4)
  1. XYZALL [Suspect]
     Dosage: 5 MG
     Route: 048
  2. CHLORAMINOPHENE [Suspect]
     Dosage: 2 MG FROM 8 TO 12 OF EACH MONTH
     Route: 048
     Dates: start: 201111, end: 20131008
  3. RISPERDAL [Suspect]
     Dosage: 1 MG
     Route: 048
  4. SERESTA [Suspect]
     Dosage: 10 MG
     Route: 048

REACTIONS (1)
  - Anaemia [Recovering/Resolving]
